FAERS Safety Report 14879677 (Version 1)
Quarter: 2018Q2

REPORT INFORMATION
  Report Type: Spontaneous
  Country: US (occurrence: US)
  Receive Date: 20180424
  Receipt Date: 20180424
  Transmission Date: 20180711
  Serious: Yes (Hospitalization)
  Sender: FDA-Public Use
  Company Number: None

PATIENT
  Age: 75 Year
  Sex: Female

DRUGS (7)
  1. HYDROCO [Concomitant]
  2. ESTRADIOL. [Concomitant]
     Active Substance: ESTRADIOL
  3. METOPROLOL TARTRATE. [Concomitant]
     Active Substance: METOPROLOL TARTRATE
  4. CARISOPRODOL. [Concomitant]
     Active Substance: CARISOPRODOL
  5. MINOCYCLINE [Concomitant]
     Active Substance: MINOCYCLINE\MINOCYCLINE HYDROCHLORIDE
  6. TRAMADOL. [Concomitant]
     Active Substance: TRAMADOL
  7. SIMPONI [Suspect]
     Active Substance: GOLIMUMAB
     Indication: COLITIS
     Dosage: ?          OTHER DOSE:100MG/1 ML;?
     Route: 058
     Dates: start: 20170325

REACTIONS (1)
  - Spinal operation [None]

NARRATIVE: CASE EVENT DATE: 201804
